FAERS Safety Report 13685205 (Version 1)
Quarter: 2017Q2

REPORT INFORMATION
  Report Type: Spontaneous
  Country: US (occurrence: US)
  Receive Date: 20170623
  Receipt Date: 20170623
  Transmission Date: 20170830
  Serious: No
  Sender: FDA-Public Use
  Company Number: US-GLAXOSMITHKLINE-US2017061734

PATIENT
  Age: 21 Year
  Sex: Male

DRUGS (5)
  1. HALDOL [Concomitant]
     Active Substance: HALOPERIDOL
     Indication: AGITATION
     Dosage: DOSAGE FORM: UNSPECIFIED, PRN (AS NEEDED)
     Route: 065
     Dates: start: 200801
  2. BENADRYL [Suspect]
     Active Substance: DIPHENHYDRAMINE HYDROCHLORIDE
     Indication: INSOMNIA
     Dosage: DOSAGE FORM: UNSPECIFIED, PRN (AS NEEDED), AT BEDTIME
     Route: 065
     Dates: start: 200801
  3. RISPERDAL [Concomitant]
     Active Substance: RISPERIDONE
     Indication: PRODUCT USED FOR UNKNOWN INDICATION
     Dosage: DOSAGE FORM: UNSPECIFIED, AT BEDTIME
     Route: 065
     Dates: start: 200801, end: 200801
  4. NICOTINE GUM ORAL GUM [Suspect]
     Active Substance: NICOTINE
     Indication: NICOTINE DEPENDENCE
     Dosage: 4 MG, UNK
     Route: 065
     Dates: start: 200801
  5. ATIVAN [Concomitant]
     Active Substance: LORAZEPAM
     Indication: AGITATION
     Dosage: DOSAGE FORM: UNSPECIFIED, PRN (AS NEEDED)
     Route: 065
     Dates: start: 200801

REACTIONS (2)
  - Off label use [Unknown]
  - Product use in unapproved indication [Unknown]

NARRATIVE: CASE EVENT DATE: 200801
